FAERS Safety Report 11366039 (Version 1)
Quarter: 2015Q3

REPORT INFORMATION
  Report Type: Spontaneous
  Country: US (occurrence: US)
  Receive Date: 20150811
  Receipt Date: 20150811
  Transmission Date: 20151125
  Serious: No
  Sender: FDA-Public Use
  Company Number: US-BAYER-2015-391620

PATIENT
  Sex: Male

DRUGS (1)
  1. AVELOX [Suspect]
     Active Substance: MOXIFLOXACIN HYDROCHLORIDE
     Indication: SINUSITIS
     Dosage: AT LEAST OCCASIONS THROUGHOUT 2011 AND 2012
     Dates: start: 2011, end: 2012

REACTIONS (9)
  - Neuropathy peripheral [None]
  - Discomfort [None]
  - Hypoaesthesia [Not Recovered/Not Resolved]
  - Pain [None]
  - Injury [None]
  - Emotional distress [None]
  - Anxiety [None]
  - Anhedonia [None]
  - Activities of daily living impaired [None]

NARRATIVE: CASE EVENT DATE: 201301
